FAERS Safety Report 5160579-1 (Version None)
Quarter: 2006Q4

REPORT INFORMATION
  Report Type: 
  Country: None (occurrence: None)
  Receive Date: 20061121
  Receipt Date: 20061106
  Transmission Date: 20070319
  Serious: Yes (Other)
  Sender: FDA-Public Use
  Company Number: 2006137155

PATIENT
  Age: 64 Year
  Sex: Female
  Weight: 47.1741 kg

DRUGS (1)
  1. BEXTRA [Suspect]
     Indication: ARTHRITIS
     Dosage: 20 MG (1 D)
     Dates: start: 20030515

REACTIONS (3)
  - ADJUSTMENT DISORDER [None]
  - ANXIETY [None]
  - CEREBROVASCULAR ACCIDENT [None]
